FAERS Safety Report 7493989-8 (Version None)
Quarter: 2011Q2

REPORT INFORMATION
  Report Type: 
  Country: None (occurrence: None)
  Receive Date: 20110519
  Receipt Date: 20110519
  Transmission Date: 20111010
  Serious: No
  Sender: FDA-Public Use
  Company Number: None

PATIENT
  Age: 46 Year
  Sex: Female
  Weight: 61.4 kg

DRUGS (4)
  1. VIVELLE [Suspect]
     Indication: OSTEOPOROSIS
     Dosage: .035 MG 2X WK PATCH
     Route: 062
     Dates: start: 20110101
  2. VIVELLE [Suspect]
     Indication: MENOPAUSE
     Dosage: .035 MG 2X WK PATCH
     Route: 062
     Dates: start: 20110101
  3. VIVELLE [Suspect]
     Indication: OSTEOPOROSIS
     Dosage: .035 MG 2X WK PATCH
     Route: 062
     Dates: start: 20110301
  4. VIVELLE [Suspect]
     Indication: MENOPAUSE
     Dosage: .035 MG 2X WK PATCH
     Route: 062
     Dates: start: 20110301

REACTIONS (7)
  - ANXIETY [None]
  - DEPRESSION [None]
  - POOR QUALITY SLEEP [None]
  - CRYING [None]
  - FATIGUE [None]
  - DISTURBANCE IN ATTENTION [None]
  - MOOD SWINGS [None]
